FAERS Safety Report 12457657 (Version 1)
Quarter: 2016Q2

REPORT INFORMATION
  Report Type: Report from Study
  Country: US (occurrence: US)
  Receive Date: 20160610
  Receipt Date: 20160610
  Transmission Date: 20160815
  Serious: Yes (Death, Hospitalization, Other)
  Sender: FDA-Public Use
  Company Number: US-GILEAD-2016-0209287

PATIENT
  Age: 86 Year
  Sex: Female

DRUGS (2)
  1. IDELALISIB [Suspect]
     Active Substance: IDELALISIB
     Dosage: 150 MG, BID
     Route: 048
     Dates: start: 20160222, end: 20160419
  2. IDELALISIB [Suspect]
     Active Substance: IDELALISIB
     Indication: CHRONIC LYMPHOCYTIC LEUKAEMIA
     Dosage: 150 MG, BID
     Route: 048
     Dates: start: 20150519, end: 20150902

REACTIONS (6)
  - Dyspnoea [Not Recovered/Not Resolved]
  - Cough [Unknown]
  - Death [Fatal]
  - Pain [Unknown]
  - Pneumonitis [Unknown]
  - Nausea [Unknown]

NARRATIVE: CASE EVENT DATE: 20160420
